FAERS Safety Report 8249649-9 (Version None)
Quarter: 2012Q2

REPORT INFORMATION
  Report Type: 
  Country: None (occurrence: None)
  Receive Date: 20120402
  Receipt Date: 20120327
  Transmission Date: 20120825
  Serious: Yes (Death)
  Sender: FDA-Public Use
  Company Number: US-SANOFI-AVENTIS-2012SA021422

PATIENT
  Age: 42 Year
  Sex: Female

DRUGS (2)
  1. WARFARIN SODIUM [Suspect]
     Route: 065
  2. ENOXAPARIN SODIUM [Suspect]
     Route: 065

REACTIONS (2)
  - RESPIRATORY DISTRESS [None]
  - PULMONARY EMBOLISM [None]
